FAERS Safety Report 25068038 (Version 2)
Quarter: 2025Q2

REPORT INFORMATION
  Report Type: Spontaneous
  Country: DE (occurrence: DE)
  Receive Date: 20250312
  Receipt Date: 20250519
  Transmission Date: 20250717
  Serious: Yes (Life-Threatening, Hospitalization, Disabling, Other)
  Sender: MYLAN
  Company Number: DE-MYLANLABS-2025M1018511

PATIENT
  Sex: Male

DRUGS (72)
  1. VALPROIC ACID [Suspect]
     Active Substance: VALPROIC ACID
     Indication: Partial seizures
     Dosage: 4000 MILLIGRAM, QD
  2. VALPROIC ACID [Suspect]
     Active Substance: VALPROIC ACID
     Indication: Rasmussen encephalitis
     Dosage: 4000 MILLIGRAM, QD
     Route: 065
  3. VALPROIC ACID [Suspect]
     Active Substance: VALPROIC ACID
     Indication: Status epilepticus
     Dosage: 4000 MILLIGRAM, QD
     Route: 065
  4. VALPROIC ACID [Suspect]
     Active Substance: VALPROIC ACID
     Dosage: 4000 MILLIGRAM, QD
  5. LEVETIRACETAM [Suspect]
     Active Substance: LEVETIRACETAM
     Indication: Partial seizures
     Dosage: 2000 MILLIGRAM, QD
  6. LEVETIRACETAM [Suspect]
     Active Substance: LEVETIRACETAM
     Indication: Rasmussen encephalitis
     Dosage: 2000 MILLIGRAM, QD
     Route: 065
  7. LEVETIRACETAM [Suspect]
     Active Substance: LEVETIRACETAM
     Indication: Status epilepticus
     Dosage: 2000 MILLIGRAM, QD
     Route: 065
  8. LEVETIRACETAM [Suspect]
     Active Substance: LEVETIRACETAM
     Dosage: 2000 MILLIGRAM, QD
  9. OXCARBAZEPINE [Suspect]
     Active Substance: OXCARBAZEPINE
     Indication: Partial seizures
     Dosage: 1800 MILLIGRAM, QD
  10. OXCARBAZEPINE [Suspect]
     Active Substance: OXCARBAZEPINE
     Indication: Rasmussen encephalitis
     Dosage: 1800 MILLIGRAM, QD
     Route: 065
  11. OXCARBAZEPINE [Suspect]
     Active Substance: OXCARBAZEPINE
     Indication: Status epilepticus
     Dosage: 1800 MILLIGRAM, QD
     Route: 065
  12. OXCARBAZEPINE [Suspect]
     Active Substance: OXCARBAZEPINE
     Dosage: 1800 MILLIGRAM, QD
  13. LAMOTRIGINE [Suspect]
     Active Substance: LAMOTRIGINE
     Indication: Partial seizures
     Dosage: 200 MILLIGRAM, QD
  14. LAMOTRIGINE [Suspect]
     Active Substance: LAMOTRIGINE
     Indication: Rasmussen encephalitis
     Dosage: 200 MILLIGRAM, QD
     Route: 065
  15. LAMOTRIGINE [Suspect]
     Active Substance: LAMOTRIGINE
     Indication: Status epilepticus
     Dosage: 200 MILLIGRAM, QD
     Route: 065
  16. LAMOTRIGINE [Suspect]
     Active Substance: LAMOTRIGINE
     Dosage: 200 MILLIGRAM, QD
  17. LACOSAMIDE [Suspect]
     Active Substance: LACOSAMIDE
     Indication: Partial seizures
     Dosage: 375 MILLIGRAM, QD
  18. LACOSAMIDE [Suspect]
     Active Substance: LACOSAMIDE
     Indication: Rasmussen encephalitis
     Dosage: 375 MILLIGRAM, QD
     Route: 065
  19. LACOSAMIDE [Suspect]
     Active Substance: LACOSAMIDE
     Indication: Status epilepticus
     Dosage: 375 MILLIGRAM, QD
     Route: 065
  20. LACOSAMIDE [Suspect]
     Active Substance: LACOSAMIDE
     Dosage: 375 MILLIGRAM, QD
  21. AZATHIOPRINE [Suspect]
     Active Substance: AZATHIOPRINE
     Indication: Partial seizures
  22. AZATHIOPRINE [Suspect]
     Active Substance: AZATHIOPRINE
     Indication: Rasmussen encephalitis
     Route: 065
  23. AZATHIOPRINE [Suspect]
     Active Substance: AZATHIOPRINE
     Indication: Status epilepticus
     Route: 065
  24. AZATHIOPRINE [Suspect]
     Active Substance: AZATHIOPRINE
  25. METHOTREXATE [Suspect]
     Active Substance: METHOTREXATE
     Indication: Partial seizures
  26. METHOTREXATE [Suspect]
     Active Substance: METHOTREXATE
     Indication: Rasmussen encephalitis
     Route: 065
  27. METHOTREXATE [Suspect]
     Active Substance: METHOTREXATE
     Indication: Status epilepticus
     Route: 065
  28. METHOTREXATE [Suspect]
     Active Substance: METHOTREXATE
  29. MYCOPHENOLATE MOFETIL [Suspect]
     Active Substance: MYCOPHENOLATE MOFETIL
     Indication: Partial seizures
  30. MYCOPHENOLATE MOFETIL [Suspect]
     Active Substance: MYCOPHENOLATE MOFETIL
     Indication: Rasmussen encephalitis
     Route: 065
  31. MYCOPHENOLATE MOFETIL [Suspect]
     Active Substance: MYCOPHENOLATE MOFETIL
     Indication: Status epilepticus
     Route: 065
  32. MYCOPHENOLATE MOFETIL [Suspect]
     Active Substance: MYCOPHENOLATE MOFETIL
  33. CLOBAZAM [Suspect]
     Active Substance: CLOBAZAM
     Indication: Partial seizures
     Dosage: 30 MILLIGRAM, QD
  34. CLOBAZAM [Suspect]
     Active Substance: CLOBAZAM
     Indication: Rasmussen encephalitis
     Dosage: 30 MILLIGRAM, QD
     Route: 065
  35. CLOBAZAM [Suspect]
     Active Substance: CLOBAZAM
     Indication: Status epilepticus
     Dosage: 30 MILLIGRAM, QD
     Route: 065
  36. CLOBAZAM [Suspect]
     Active Substance: CLOBAZAM
     Dosage: 30 MILLIGRAM, QD
  37. PHENYTOIN [Suspect]
     Active Substance: PHENYTOIN
     Indication: Partial seizures
     Dosage: 500 MILLIGRAM, QD
  38. PHENYTOIN [Suspect]
     Active Substance: PHENYTOIN
     Indication: Rasmussen encephalitis
     Dosage: 500 MILLIGRAM, QD
  39. PHENYTOIN [Suspect]
     Active Substance: PHENYTOIN
     Indication: Status epilepticus
     Dosage: 500 MILLIGRAM, QD
     Route: 065
  40. PHENYTOIN [Suspect]
     Active Substance: PHENYTOIN
     Dosage: 500 MILLIGRAM, QD
     Route: 065
  41. PHENYTOIN [Suspect]
     Active Substance: PHENYTOIN
     Dosage: 150 MILLIGRAM, QD
  42. PHENYTOIN [Suspect]
     Active Substance: PHENYTOIN
     Dosage: 150 MILLIGRAM, QD
  43. PHENYTOIN [Suspect]
     Active Substance: PHENYTOIN
     Dosage: 150 MILLIGRAM, QD
     Route: 065
  44. PHENYTOIN [Suspect]
     Active Substance: PHENYTOIN
     Dosage: 150 MILLIGRAM, QD
     Route: 065
  45. CANNABIS SATIVA SUBSP. INDICA TOP [Suspect]
     Active Substance: CANNABIS SATIVA SUBSP. INDICA TOP
     Indication: Partial seizures
  46. CANNABIS SATIVA SUBSP. INDICA TOP [Suspect]
     Active Substance: CANNABIS SATIVA SUBSP. INDICA TOP
     Indication: Rasmussen encephalitis
     Route: 055
  47. CANNABIS SATIVA SUBSP. INDICA TOP [Suspect]
     Active Substance: CANNABIS SATIVA SUBSP. INDICA TOP
     Indication: Status epilepticus
     Route: 055
  48. CANNABIS SATIVA SUBSP. INDICA TOP [Suspect]
     Active Substance: CANNABIS SATIVA SUBSP. INDICA TOP
  49. PERAMPANEL [Suspect]
     Active Substance: PERAMPANEL
     Indication: Partial seizures
     Dosage: 14 MILLIGRAM, QD
  50. PERAMPANEL [Suspect]
     Active Substance: PERAMPANEL
     Indication: Rasmussen encephalitis
     Dosage: 14 MILLIGRAM, QD
     Route: 065
  51. PERAMPANEL [Suspect]
     Active Substance: PERAMPANEL
     Indication: Status epilepticus
     Dosage: 14 MILLIGRAM, QD
     Route: 065
  52. PERAMPANEL [Suspect]
     Active Substance: PERAMPANEL
     Dosage: 14 MILLIGRAM, QD
  53. BRIVARACETAM [Suspect]
     Active Substance: BRIVARACETAM
     Indication: Partial seizures
     Dosage: 200 MILLIGRAM, QD
  54. BRIVARACETAM [Suspect]
     Active Substance: BRIVARACETAM
     Indication: Rasmussen encephalitis
     Dosage: 200 MILLIGRAM, QD
     Route: 065
  55. BRIVARACETAM [Suspect]
     Active Substance: BRIVARACETAM
     Indication: Status epilepticus
     Dosage: 200 MILLIGRAM, QD
     Route: 065
  56. BRIVARACETAM [Suspect]
     Active Substance: BRIVARACETAM
     Dosage: 200 MILLIGRAM, QD
  57. PREDNISONE [Suspect]
     Active Substance: PREDNISONE
     Indication: Partial seizures
  58. PREDNISONE [Suspect]
     Active Substance: PREDNISONE
     Indication: Status epilepticus
     Route: 065
  59. PREDNISONE [Suspect]
     Active Substance: PREDNISONE
     Indication: Rasmussen encephalitis
     Route: 065
  60. PREDNISONE [Suspect]
     Active Substance: PREDNISONE
  61. HUMAN IMMUNOGLOBULIN G [Suspect]
     Active Substance: HUMAN IMMUNOGLOBULIN G
     Indication: Partial seizures
  62. HUMAN IMMUNOGLOBULIN G [Suspect]
     Active Substance: HUMAN IMMUNOGLOBULIN G
     Indication: Rasmussen encephalitis
     Route: 042
  63. HUMAN IMMUNOGLOBULIN G [Suspect]
     Active Substance: HUMAN IMMUNOGLOBULIN G
     Indication: Status epilepticus
     Route: 042
  64. HUMAN IMMUNOGLOBULIN G [Suspect]
     Active Substance: HUMAN IMMUNOGLOBULIN G
  65. ADALIMUMAB [Suspect]
     Active Substance: ADALIMUMAB
     Indication: Partial seizures
  66. ADALIMUMAB [Suspect]
     Active Substance: ADALIMUMAB
     Indication: Rasmussen encephalitis
     Route: 065
  67. ADALIMUMAB [Suspect]
     Active Substance: ADALIMUMAB
     Indication: Status epilepticus
     Route: 065
  68. ADALIMUMAB [Suspect]
     Active Substance: ADALIMUMAB
  69. RITUXIMAB [Concomitant]
     Active Substance: RITUXIMAB
     Indication: Partial seizures
  70. RITUXIMAB [Concomitant]
     Active Substance: RITUXIMAB
     Indication: Rasmussen encephalitis
     Route: 065
  71. RITUXIMAB [Concomitant]
     Active Substance: RITUXIMAB
     Indication: Status epilepticus
     Route: 065
  72. RITUXIMAB [Concomitant]
     Active Substance: RITUXIMAB

REACTIONS (5)
  - Drug ineffective [Unknown]
  - Postictal paralysis [Recovering/Resolving]
  - Ataxia [Unknown]
  - Hyperammonaemia [Unknown]
  - Off label use [Unknown]
